FAERS Safety Report 8184457-9 (Version None)
Quarter: 2012Q1

REPORT INFORMATION
  Report Type: 
  Country: None (occurrence: None)
  Receive Date: 20120305
  Receipt Date: 20120224
  Transmission Date: 20120608
  Serious: No
  Sender: FDA-Public Use
  Company Number: US-JNJFOC-20120214154

PATIENT
  Sex: Male
  Weight: 86.18 kg

DRUGS (3)
  1. FENTANYL-100 [Suspect]
     Indication: PAIN
     Dosage: NDC-0781-7243-55
     Route: 062
  2. UNKNOWN MEDICATION [Concomitant]
     Route: 065
  3. OXYCODONE HCL [Concomitant]
     Indication: PAIN
     Dosage: 5/35 MG
     Route: 048

REACTIONS (3)
  - POOR QUALITY DRUG ADMINISTERED [None]
  - PAIN [None]
  - THERAPEUTIC RESPONSE DECREASED [None]
